FAERS Safety Report 8127872-1 (Version None)
Quarter: 2012Q1

REPORT INFORMATION
  Report Type: 
  Country: None (occurrence: None)
  Receive Date: 20120210
  Receipt Date: 20111101
  Transmission Date: 20120608
  Serious: No
  Sender: FDA-Public Use
  Company Number: US-GLAXOSMITHKLINE-A0951554A

PATIENT
  Sex: Female

DRUGS (3)
  1. TRAZODONE HCL [Concomitant]
  2. PAXIL [Suspect]
     Indication: FIBROMYALGIA
     Dosage: 20MG PER DAY
     Route: 048
     Dates: start: 20020101
  3. PAROXETINE [Suspect]
     Indication: FIBROMYALGIA
     Dosage: 20MG PER DAY
     Route: 048
     Dates: start: 20020101

REACTIONS (4)
  - DRUG INEFFECTIVE [None]
  - HYPOAESTHESIA [None]
  - ARTHRALGIA [None]
  - PARAESTHESIA [None]
